FAERS Safety Report 5227004-3 (Version None)
Quarter: 2007Q1

REPORT INFORMATION
  Report Type: 
  Country: None (occurrence: None)
  Receive Date: 20070130
  Receipt Date: 20070118
  Transmission Date: 20070707
  Serious: No
  Sender: FDA-Public Use
  Company Number: 200701AGG00562

PATIENT
  Age: 71 Year
  Sex: Female

DRUGS (5)
  1. TIROFIBAN HYDROCHLORIDE (TIROFIBAN HCL) [Suspect]
     Indication: CORONARY ARTERY THROMBOSIS
  2. ASPIRIN [Concomitant]
  3. CLOPIDOGREL BISULFATE [Concomitant]
  4. ENOXAPARIN SODIUM [Concomitant]
  5. HYDROXYUREA [Concomitant]

REACTIONS (2)
  - DRUG INEFFECTIVE [None]
  - VENTRICULAR FIBRILLATION [None]
